FAERS Safety Report 4352744-8 (Version None)
Quarter: 2004Q2

REPORT INFORMATION
  Report Type: 
  Country: None (occurrence: None)
  Receive Date: 20040429
  Receipt Date: 20040419
  Transmission Date: 20050107
  Serious: Yes (Hospitalization)
  Sender: FDA-Public Use
  Company Number: 04P-163-0257887-00

PATIENT
  Age: 63 Year
  Sex: Female
  Weight: 77.1115 kg

DRUGS (21)
  1. HUMIRA [Suspect]
     Indication: RHEUMATOID ARTHRITIS
     Dosage: 40 MG, 1 IN 2 WK, SUBCUTANEOUS
     Route: 058
     Dates: start: 20030101, end: 20040310
  2. METHOTREXATE SODIUM [Concomitant]
  3. METFORMIN HYDROCHLORIDE [Concomitant]
  4. CONJUGATED ESTROGEN [Concomitant]
  5. LOSARTAN POTASSIUM [Concomitant]
  6. MYCELIN [Concomitant]
  7. FOLIC ACID [Concomitant]
  8. SERTRALINE HYDROCHLORIDE [Concomitant]
  9. FUROSEMIDE [Concomitant]
  10. CYANOCOBALAMIN [Concomitant]
  11. HYDROXYZINE HYDROCHLORIDE [Concomitant]
  12. PREDNISONE [Concomitant]
  13. GABAPENTIN [Concomitant]
  14. LAMOTRIGINE [Concomitant]
  15. LANSOPRAZOLE [Concomitant]
  16. BETAXOLOL HYDROCHLORIDE [Concomitant]
  17. RESTASIS [Concomitant]
  18. VICODIN [Concomitant]
  19. DIAZEPAM [Concomitant]
  20. ASPIRIN [Concomitant]
  21. DOCUSATE CALCIUM [Concomitant]

REACTIONS (6)
  - DECUBITUS ULCER [None]
  - EAR PAIN [None]
  - FALL [None]
  - KIDNEY INFECTION [None]
  - SCIATICA [None]
  - WOUND [None]
